FAERS Safety Report 6803258-4 (Version None)
Quarter: 2010Q2

REPORT INFORMATION
  Report Type: 
  Country: None (occurrence: None)
  Receive Date: 20100628
  Receipt Date: 20100222
  Transmission Date: 20101027
  Serious: No
  Sender: FDA-Public Use
  Company Number: US-ASTRAZENECA-2010SE07719

PATIENT
  Sex: Female

DRUGS (2)
  1. ZOLADEX [Suspect]
     Route: 058
     Dates: start: 20090801
  2. AROMASIN [Concomitant]

REACTIONS (1)
  - INNER EAR DISORDER [None]
